FAERS Safety Report 23592860 (Version 1)
Quarter: 2024Q1

REPORT INFORMATION
  Report Type: Spontaneous
  Country: US (occurrence: None)
  Receive Date: 20240304
  Receipt Date: 20240304
  Transmission Date: 20240409
  Serious: Yes (Death)
  Sender: FDA-Public Use
  Company Number: None

PATIENT
  Age: 87 Year
  Sex: Female

DRUGS (2)
  1. BOTOX [Suspect]
     Active Substance: ONABOTULINUMTOXINA
     Indication: Muscle contracture
     Dosage: OTHER FREQUENCY : Q90DAY;?
  2. BOTOX [Suspect]
     Active Substance: ONABOTULINUMTOXINA
     Indication: Joint contracture

REACTIONS (1)
  - Death [None]
